FAERS Safety Report 7467964-3 (Version None)
Quarter: 2011Q2

REPORT INFORMATION
  Report Type: 
  Country: None (occurrence: None)
  Receive Date: 20110509
  Receipt Date: 20110224
  Transmission Date: 20111010
  Serious: No
  Sender: FDA-Public Use
  Company Number: US-ALEXION-A201100254

PATIENT
  Sex: Male

DRUGS (2)
  1. SOLIRIS [Suspect]
     Indication: PAROXYSMAL NOCTURNAL HAEMOGLOBINURIA
     Dosage: UNK
     Route: 042
  2. ANAGRELIDE HCL [Concomitant]
     Dosage: .5 MG, QD

REACTIONS (4)
  - EPISTAXIS [None]
  - HAEMOGLOBIN DECREASED [None]
  - RHINORRHOEA [None]
  - WHEEZING [None]
